FAERS Safety Report 6667875-7 (Version None)
Quarter: 2010Q2

REPORT INFORMATION
  Report Type: 
  Country: None (occurrence: None)
  Receive Date: 20100401
  Receipt Date: 20100317
  Transmission Date: 20101027
  Serious: Yes (Hospitalization)
  Sender: FDA-Public Use
  Company Number: IT-SOLVAY-00310000396

PATIENT
  Age: 74 Year
  Sex: Male

DRUGS (5)
  1. FLUVOXAMINE MALEATE [Suspect]
     Indication: DEPRESSION
     Dosage: 50 MILLIGRAM(S) ORAL
     Route: 048
     Dates: start: 20090101, end: 20091216
  2. CYMBALTA [Suspect]
     Indication: DEPRESSION
     Dosage: 60 MILLIGRAM(S) ORAL
     Route: 048
     Dates: start: 20090101, end: 20091216
  3. ZYPREXA [Suspect]
     Indication: DEPRESSION
  4. CLONAZEPAM [Suspect]
     Indication: DEPRESSION
     Dosage: 0.5 MILLIGRAM(S) ORAL
     Route: 048
     Dates: start: 20090101, end: 20091216
  5. ASPIRIN [Concomitant]

REACTIONS (7)
  - AGITATION [None]
  - CONFUSIONAL STATE [None]
  - DISORIENTATION [None]
  - MENTAL RETARDATION [None]
  - MUSCLE RIGIDITY [None]
  - PHYSICAL EXAMINATION ABNORMAL [None]
  - TREMOR [None]
